FAERS Safety Report 4308669-7 (Version None)
Quarter: 2004Q1

REPORT INFORMATION
  Report Type: 
  Country: None (occurrence: None)
  Receive Date: 20040301
  Receipt Date: 20040301
  Transmission Date: 20041129
  Serious: Yes (Other)
  Sender: FDA-Public Use
  Company Number: None

PATIENT
  Age: 46 Year
  Sex: Female
  Weight: 61.2356 kg

DRUGS (2)
  1. NARDIL [Suspect]
     Indication: ANXIETY
     Dosage: 4 DAY
     Dates: start: 19850101, end: 20040229
  2. NARDIL [Suspect]
     Indication: DEPRESSION
     Dosage: 4 DAY
     Dates: start: 19850101, end: 20040229

REACTIONS (4)
  - ANXIETY [None]
  - DEPRESSION [None]
  - PANIC REACTION [None]
  - PHARMACEUTICAL PRODUCT COMPLAINT [None]
